FAERS Safety Report 9369944 (Version 1)
Quarter: 2013Q2

REPORT INFORMATION
  Report Type: Spontaneous
  Country: AU (occurrence: AU)
  Receive Date: 20130626
  Receipt Date: 20130626
  Transmission Date: 20140414
  Serious: Yes (Other)
  Sender: FDA-Public Use
  Company Number: AU-SANOFI-AVENTIS-2013SA062300

PATIENT
  Age: 28 Year
  Sex: Female

DRUGS (11)
  1. ENOXAPARIN SODIUM [Suspect]
     Indication: PRODUCT USED FOR UNKNOWN INDICATION
     Route: 065
  2. GENTAMICIN SULFATE [Suspect]
     Indication: URINARY TRACT INFECTION
     Route: 065
  3. HEPARIN SODIUM [Suspect]
     Indication: PRODUCT USED FOR UNKNOWN INDICATION
     Route: 065
  4. MEROPENEM [Suspect]
     Indication: PRODUCT USED FOR UNKNOWN INDICATION
     Route: 065
  5. PARACETAMOL [Suspect]
     Indication: ANALGESIC THERAPY
     Route: 065
  6. RANITIDINE [Suspect]
     Indication: HAEMORRHAGE PROPHYLAXIS
     Route: 048
  7. FLUCONAZOLE [Suspect]
     Indication: VULVOVAGINAL CANDIDIASIS
     Route: 048
  8. AMOXICILLIN SODIUM [Suspect]
     Indication: URINARY TRACT INFECTION
     Route: 065
  9. AMPICILLIN [Suspect]
     Indication: URINARY TRACT INFECTION
     Route: 065
  10. CEFTRIAXONE [Suspect]
     Indication: URINARY TRACT INFECTION
     Route: 065
  11. CEPHALEXIN [Suspect]
     Indication: PRODUCT USED FOR UNKNOWN INDICATION
     Route: 065

REACTIONS (4)
  - Premature rupture of membranes [Recovered/Resolved]
  - Exposure during pregnancy [Unknown]
  - Pyrexia [Unknown]
  - Off label use [Unknown]
